FAERS Safety Report 6362614-1 (Version None)
Quarter: 2009Q3

REPORT INFORMATION
  Report Type: 
  Country: None (occurrence: None)
  Receive Date: 20090918
  Receipt Date: 20090603
  Transmission Date: 20100115
  Serious: No
  Sender: FDA-Public Use
  Company Number: US-ABBOTT-09P-163-0577691-00

PATIENT
  Sex: Male
  Weight: 70.37 kg

DRUGS (7)
  1. HUMIRA [Suspect]
     Indication: JUVENILE ARTHRITIS
     Route: 058
     Dates: start: 20081001
  2. LIALDA [Concomitant]
     Indication: COLITIS
     Route: 048
  3. MELOXICAM [Concomitant]
     Indication: INFLAMMATION
     Route: 048
  4. METHOTREXATE [Concomitant]
     Indication: JUVENILE ARTHRITIS
     Route: 048
  5. TRAMADOL HCL [Concomitant]
     Indication: PAIN
     Route: 048
  6. CENTURY MULTIVITAMIN W/MINERALS [Concomitant]
     Indication: VITAMIN SUPPLEMENTATION
     Route: 048
  7. MIRALAX [Concomitant]
     Indication: COLITIS
     Route: 048

REACTIONS (2)
  - DRUG DOSE OMISSION [None]
  - INJECTION SITE IRRITATION [None]
